FAERS Safety Report 24548359 (Version 1)
Quarter: 2024Q4

REPORT INFORMATION
  Report Type: Spontaneous
  Country: DE (occurrence: DE)
  Receive Date: 20241025
  Receipt Date: 20241025
  Transmission Date: 20250114
  Serious: Yes (Hospitalization, Other)
  Sender: BAXTER
  Company Number: DE-ROCHE-10000061941

PATIENT
  Age: 78 Year
  Sex: Female
  Weight: 86 kg

DRUGS (23)
  1. CYCLOPHOSPHAMIDE [Suspect]
     Active Substance: CYCLOPHOSPHAMIDE
     Indication: Diffuse large B-cell lymphoma stage I
     Dosage: DOSE: 750 MG/M2 AT UNSPECIFIED FREQUENCY VIA INTRAVENOUS (NOT OTHERWISE SPECIFIED) ROUTE, STRENGTH:
     Route: 042
     Dates: start: 20240815, end: 20240815
  2. CYCLOPHOSPHAMIDE [Suspect]
     Active Substance: CYCLOPHOSPHAMIDE
     Dosage: DOSE: 750 MG/M2 AT UNSPECIFIED FREQUENCY VIA INTRAVENOUS (NOT OTHERWISE SPECIFIED) ROUTE, STRENGTH:
     Route: 042
  3. DOXORUBICIN HYDROCHLORIDE [Suspect]
     Active Substance: DOXORUBICIN HYDROCHLORIDE
     Indication: Diffuse large B-cell lymphoma stage I
     Dosage: DOSE: 50 MG/M2 AT UNSPECIFIED FREQUENCY VIA INTRAVENOUS (NOT OTHERWISE SPECIFIED) ROUTE, STRENGTH: 2
     Route: 042
  4. DOXORUBICIN HYDROCHLORIDE [Suspect]
     Active Substance: DOXORUBICIN HYDROCHLORIDE
     Dosage: DOSE: 50 MG/M2 AT UNSPECIFIED FREQUENCY VIA INTRAVENOUS (NOT OTHERWISE SPECIFIED) ROUTE, STRENGTH: 2
     Route: 042
     Dates: start: 20240815, end: 20240815
  5. EPCORITAMAB [Suspect]
     Active Substance: EPCORITAMAB
     Indication: Diffuse large B-cell lymphoma stage I
     Dosage: DOSE: 48 MG FOR 21 DAYS, DOSAGE FORM: INJECTION, SOLUTION, DOSE FORM: SOLUTION FOR INJECTION
     Route: 058
     Dates: start: 20240724, end: 20240724
  6. EPCORITAMAB [Suspect]
     Active Substance: EPCORITAMAB
     Dosage: DOSE: 48 MG FOR 21 DAYS, DOSAGE FORM: INJECTION, SOLUTION, DOSE FORM: SOLUTION FOR INJECTION
     Route: 058
     Dates: start: 20240801, end: 20240801
  7. EPCORITAMAB [Suspect]
     Active Substance: EPCORITAMAB
     Dosage: DOSE: 48 MG FOR 21 DAYS, DOSAGE FORM: INJECTION, SOLUTION, DOSE FORM: SOLUTION FOR INJECTION
     Route: 058
     Dates: start: 20240808
  8. RITUXIMAB [Suspect]
     Active Substance: RITUXIMAB
     Indication: Diffuse large B-cell lymphoma stage I
     Dosage: DOSE: 375 MG/M2 FOR 21 DAYS VIA INTRAVENOUS (NOT OTHERWISE SPECIFIED) ROUTE, DOSAGE FORM: SOLUTION F
     Route: 042
     Dates: start: 20240815, end: 20240815
  9. RITUXIMAB [Suspect]
     Active Substance: RITUXIMAB
     Dosage: DOSE: 375 MG/M2 FOR 21 DAYS VIA INTRAVENOUS (NOT OTHERWISE SPECIFIED) ROUTE, DOSAGE FORM: SOLUTION F
     Route: 042
     Dates: start: 20240723, end: 20240723
  10. VINCRISTINE [Suspect]
     Active Substance: VINCRISTINE
     Indication: Diffuse large B-cell lymphoma stage I
     Dosage: DOSE: 1.4 MG/M2 FOR UNSPECIFIED FREQUENCY VIA INTRAVENOUS (NOT OTHERWISE SPECIFIED) ROUTE, STRENGTH:
     Route: 042
     Dates: start: 20240815, end: 20240815
  11. VINCRISTINE [Suspect]
     Active Substance: VINCRISTINE
     Dosage: DOSE: 1.4 MG/M2 FOR UNSPECIFIED FREQUENCY VIA INTRAVENOUS (NOT OTHERWISE SPECIFIED) ROUTE, STRENGTH:
     Route: 042
     Dates: start: 20240724, end: 20240724
  12. PREDNISONE [Suspect]
     Active Substance: PREDNISONE
     Indication: Diffuse large B-cell lymphoma stage I
     Dosage: DOSE: 100 MG ONCE DAILY VIA INTRAVENOUS (NOT OTHERWISE SPECIFIED) ROUTE, STRENGTH: 2.5 MG / 1 EA
     Route: 042
  13. SULFAMETHOXAZOLE\TRIMETHOPRIM [Concomitant]
     Active Substance: SULFAMETHOXAZOLE\TRIMETHOPRIM
     Dosage: UNK
     Route: 065
     Dates: start: 20240724
  14. PANTOPRAZOL A [Concomitant]
     Dosage: UNK
     Route: 065
     Dates: start: 20240625
  15. ACETAMINOPHEN [Concomitant]
     Active Substance: ACETAMINOPHEN
     Dosage: UNK
     Route: 065
     Dates: start: 20240908, end: 20240912
  16. ELIQUIS [Concomitant]
     Active Substance: APIXABAN
     Dosage: UNK
     Route: 065
     Dates: start: 20230901
  17. ALLOPURINOL [Concomitant]
     Active Substance: ALLOPURINOL
     Dosage: UNK
     Route: 065
     Dates: start: 20240725
  18. LOPERAMIDE [Concomitant]
     Active Substance: LOPERAMIDE
     Dosage: UNK
     Route: 065
     Dates: start: 20240729, end: 20240729
  19. BISOPROLOL [Concomitant]
     Active Substance: BISOPROLOL\BISOPROLOL FUMARATE
     Dosage: UNK
     Route: 065
     Dates: start: 20231026
  20. FUROSEMID 3MM [Concomitant]
     Dosage: UNK
     Route: 065
     Dates: start: 20240724, end: 20240725
  21. NEUPOGEN [Concomitant]
     Active Substance: FILGRASTIM
     Dosage: UNK
     Route: 065
     Dates: start: 20240801, end: 20240803
  22. CLEMASTINE FUMARATE [Concomitant]
     Active Substance: CLEMASTINE FUMARATE
     Dosage: UNK
     Route: 065
     Dates: start: 20240808, end: 20240912
  23. ACYCLOVIR [Concomitant]
     Active Substance: ACYCLOVIR
     Dosage: UNK
     Route: 065
     Dates: start: 20240807

REACTIONS (3)
  - Cytokine release syndrome [Recovered/Resolved]
  - Hypokalaemia [Recovered/Resolved]
  - Dyspnoea [Recovered/Resolved]

NARRATIVE: CASE EVENT DATE: 20240809
